FAERS Safety Report 6897037-X (Version None)
Quarter: 2010Q3

REPORT INFORMATION
  Report Type: 
  Country: None (occurrence: None)
  Receive Date: 20100802
  Receipt Date: 20070319
  Transmission Date: 20110219
  Serious: No
  Sender: FDA-Public Use
  Company Number: US-PFIZER INC-2007022789

PATIENT
  Sex: Female
  Weight: 127 kg

DRUGS (11)
  1. LYRICA [Suspect]
     Indication: PAIN IN EXTREMITY
     Dates: start: 20070206
  2. ATENOLOL [Concomitant]
  3. LEXAPRO [Concomitant]
  4. IMIPRAMINE [Concomitant]
  5. PREVACID [Concomitant]
  6. PROVIGIL [Concomitant]
  7. MORPHINE SULFATE [Concomitant]
  8. OXYCODONE [Concomitant]
  9. SKELAXIN [Concomitant]
  10. REVATIO [Concomitant]
  11. FLONASE [Concomitant]

REACTIONS (1)
  - OEDEMA PERIPHERAL [None]
